FAERS Safety Report 14534657 (Version 3)
Quarter: 2018Q1

REPORT INFORMATION
  Report Type: Spontaneous
  Country: JP (occurrence: JP)
  Receive Date: 20180215
  Receipt Date: 20180315
  Transmission Date: 20180509
  Serious: Yes (Other)
  Sender: FDA-Public Use
  Company Number: JP-GLAXOSMITHKLINE-JP2018JPN024143

PATIENT
  Age: 10 Year
  Sex: Female
  Weight: 35 kg

DRUGS (5)
  1. ZESULAN FINE GRANULES FOR PEDIATRIC [Concomitant]
     Indication: RHINORRHOEA
     Dosage: 0.5 DF, 1D
     Dates: start: 20180209, end: 20180212
  2. RELENZA [Suspect]
     Active Substance: ZANAMIVIR
     Indication: INFLUENZA
     Dosage: 10 MG, SINGLE
     Route: 055
     Dates: start: 20180209, end: 20180209
  3. CALONAL FINE GRANULES 20% [Concomitant]
     Indication: PYREXIA
     Dosage: 1.5 DF, PRN
     Dates: start: 20180209, end: 20180210
  4. ASVERIN POWDER [Concomitant]
     Indication: COUGH
     Dosage: 0.3 DF, 1D
     Dates: start: 20180209, end: 20180212
  5. MUCODYNE DRY SYRUP [Concomitant]
     Indication: PRODUCTIVE COUGH
     Dosage: 1.5 DF, 1D
     Dates: start: 20180209, end: 20180212

REACTIONS (4)
  - Gaze palsy [Recovered/Resolved]
  - Seizure [Recovered/Resolved]
  - Loss of consciousness [Recovered/Resolved]
  - Unresponsive to stimuli [Recovered/Resolved]

NARRATIVE: CASE EVENT DATE: 20180209
